FAERS Safety Report 9921738 (Version 2)
Quarter: 2014Q1

REPORT INFORMATION
  Report Type: Spontaneous
  Country: US (occurrence: US)
  Receive Date: 20140225
  Receipt Date: 20140318
  Transmission Date: 20141002
  Serious: Yes (Death, Life-Threatening)
  Sender: FDA-Public Use
  Company Number: US-009507513-1402USA010970

PATIENT
  Age: 61 Year
  Sex: Female

DRUGS (6)
  1. EMEND [Suspect]
     Indication: PROPHYLAXIS OF NAUSEA AND VOMITING
     Dosage: 125 MG, UNK
     Route: 048
     Dates: start: 20140210, end: 201402
  2. EMEND [Suspect]
     Dosage: 80 MG, UNK
     Route: 048
     Dates: start: 201402, end: 201402
  3. TEMODAR [Suspect]
     Route: 048
  4. HEXADROL TABLETS [Concomitant]
  5. COMPAZINE [Concomitant]
  6. ATIVAN [Concomitant]

REACTIONS (1)
  - Death [Fatal]
